FAERS Safety Report 9866883 (Version 1)
Quarter: 2014Q1

REPORT INFORMATION
  Report Type: Spontaneous
  Country: US (occurrence: None)
  Receive Date: 20140203
  Receipt Date: 20140203
  Transmission Date: 20141002
  Serious: Yes (Hospitalization, Disabling)
  Sender: FDA-Public Use
  Company Number: None

PATIENT
  Age: 40 Year
  Sex: Female
  Weight: 59.88 kg

DRUGS (2)
  1. PROMETRIUM [Suspect]
     Indication: PROPHYLAXIS
     Dosage: 3 PILLS DAILY?TWICE DAILY ?TAKEN BY MOUTH?OFF AND ON 2006-2011
     Route: 048
     Dates: start: 2006, end: 2011
  2. PROMETRIUM [Suspect]
     Indication: ABORTION SPONTANEOUS
     Dosage: 3 PILLS DAILY?TWICE DAILY ?TAKEN BY MOUTH?OFF AND ON 2006-2011
     Route: 048
     Dates: start: 2006, end: 2011

REACTIONS (3)
  - Oestrogen receptor positive breast cancer [None]
  - Progesterone receptor assay positive [None]
  - Breast cancer [None]
